FAERS Safety Report 16099580 (Version 4)
Quarter: 2019Q2

REPORT INFORMATION
  Report Type: Other
  Country: US (occurrence: US)
  Receive Date: 20190321
  Receipt Date: 20190607
  Transmission Date: 20190711
  Serious: Yes (Other)
  Sender: FDA-Public Use
  Company Number: US-ACORDA-ACO_157728_2019

PATIENT
  Age: 68 Year
  Sex: Female

DRUGS (5)
  1. TECFIDERA [Suspect]
     Active Substance: DIMETHYL FUMARATE
     Indication: MULTIPLE SCLEROSIS
     Dosage: 120 MILLIGRAM, BID
     Route: 048
     Dates: start: 20180330
  2. AMPYRA [Suspect]
     Active Substance: DALFAMPRIDINE
     Indication: GAIT DISTURBANCE
     Dosage: 10 MILLIGRAM, BID
     Route: 048
  3. AMPYRA [Suspect]
     Active Substance: DALFAMPRIDINE
     Indication: MULTIPLE SCLEROSIS
     Dosage: 10 MILLIGRAM, BID
     Route: 048
     Dates: start: 2016
  4. GABAPENTIN. [Concomitant]
     Active Substance: GABAPENTIN
     Indication: PRODUCT USED FOR UNKNOWN INDICATION
     Dosage: UNK
     Route: 065
  5. LYRICA [Concomitant]
     Active Substance: PREGABALIN
     Indication: PRODUCT USED FOR UNKNOWN INDICATION
     Dosage: UNK
     Route: 065

REACTIONS (12)
  - Diarrhoea [Not Recovered/Not Resolved]
  - Condition aggravated [Not Recovered/Not Resolved]
  - Pain [Not Recovered/Not Resolved]
  - Dysphagia [Not Recovered/Not Resolved]
  - Primary progressive multiple sclerosis [Not Recovered/Not Resolved]
  - Renal impairment [Not Recovered/Not Resolved]
  - Therapy cessation [Recovered/Resolved]
  - Flushing [Not Recovered/Not Resolved]
  - Cerebrovascular accident [Not Recovered/Not Resolved]
  - Fall [Not Recovered/Not Resolved]
  - Gait disturbance [Not Recovered/Not Resolved]
  - Laboratory test abnormal [Not Recovered/Not Resolved]

NARRATIVE: CASE EVENT DATE: 20190306
